FAERS Safety Report 5705322-X (Version None)
Quarter: 2008Q2

REPORT INFORMATION
  Report Type: 
  Country: None (occurrence: None)
  Receive Date: 20080410
  Receipt Date: 20080328
  Transmission Date: 20081010
  Serious: Yes (Hospitalization, Other)
  Sender: FDA-Public Use
  Company Number: 2008PL000040

PATIENT
  Age: 61 Year
  Sex: Male

DRUGS (4)
  1. AZATHIOPRINE [Suspect]
     Indication: IMMUNOSUPPRESSANT DRUG THERAPY
     Dosage: 75 MG; QD; PO
     Route: 048
     Dates: start: 19900101, end: 20020101
  2. PREDNISOLONE [Concomitant]
  3. CYCLOSPORINE [Concomitant]
  4. MYCOPHENOLATE MOFETIL [Concomitant]

REACTIONS (5)
  - ABDOMINAL DISCOMFORT [None]
  - ABDOMINAL INJURY [None]
  - HAEMODIALYSIS [None]
  - PYREXIA [None]
  - RENAL CELL CARCINOMA [None]
